FAERS Safety Report 9385811 (Version 2)
Quarter: 2013Q3

REPORT INFORMATION
  Report Type: Spontaneous
  Country: FR (occurrence: FR)
  Receive Date: 20130705
  Receipt Date: 20130719
  Transmission Date: 20140515
  Serious: Yes (Hospitalization, Other)
  Sender: FDA-Public Use
  Company Number: PHHY2013FR070301

PATIENT
  Age: 38 Year
  Sex: Female

DRUGS (6)
  1. ANAFRANIL [Suspect]
     Indication: MAJOR DEPRESSION
     Dosage: UNK UKN, UNK
     Route: 042
  2. ANAFRANIL [Suspect]
     Dosage: 75 MG, (INCREASED DOSE) DAILY
     Route: 042
  3. ANAFRANIL [Suspect]
     Dosage: 100 MG, DAILY
     Route: 042
  4. ANAFRANIL [Suspect]
     Dosage: 187.5 MG, DAILY
     Route: 048
  5. ALPRAZOLAM [Concomitant]
     Dosage: 0.5 MG, TID
  6. ARIPIPRAZOLE [Concomitant]
     Dosage: 5 MG, UNK

REACTIONS (18)
  - Drug reaction with eosinophilia and systemic symptoms [Recovering/Resolving]
  - Rash [Recovering/Resolving]
  - Cough [Recovering/Resolving]
  - Prurigo [Recovering/Resolving]
  - Pruritus [Recovering/Resolving]
  - Cell death [Recovering/Resolving]
  - Diarrhoea [Recovering/Resolving]
  - Dyspnoea [Recovering/Resolving]
  - Skin lesion [Recovering/Resolving]
  - Eosinophilia [Recovering/Resolving]
  - Inflammation [Recovering/Resolving]
  - Leukocytosis [Recovering/Resolving]
  - Hypokalaemia [Recovering/Resolving]
  - Hyponatraemia [Recovering/Resolving]
  - Toxic skin eruption [Recovering/Resolving]
  - Rash maculo-papular [Recovering/Resolving]
  - Hepatic function abnormal [Recovering/Resolving]
  - General physical health deterioration [Recovering/Resolving]
